FAERS Safety Report 13261770 (Version 1)
Quarter: 2017Q1

REPORT INFORMATION
  Report Type: Spontaneous
  Country: US (occurrence: US)
  Receive Date: 20170222
  Receipt Date: 20170222
  Transmission Date: 20170428
  Serious: No
  Sender: FDA-Public Use
  Company Number: US-GILEAD-2017-0258592

PATIENT
  Age: 65 Year
  Sex: Female

DRUGS (1)
  1. HARVONI [Suspect]
     Active Substance: LEDIPASVIR\SOFOSBUVIR
     Indication: PRODUCT USED FOR UNKNOWN INDICATION
     Dosage: UNK
     Route: 065
     Dates: start: 201509, end: 201510

REACTIONS (7)
  - Affect lability [Not Recovered/Not Resolved]
  - Feeling abnormal [Not Recovered/Not Resolved]
  - Muscle spasms [Not Recovered/Not Resolved]
  - Decreased activity [Not Recovered/Not Resolved]
  - Treatment noncompliance [Recovered/Resolved]
  - Muscle tightness [Not Recovered/Not Resolved]
  - Social avoidant behaviour [Not Recovered/Not Resolved]
